FAERS Safety Report 4814010-3 (Version None)
Quarter: 2005Q4

REPORT INFORMATION
  Report Type: 
  Country: None (occurrence: None)
  Receive Date: 20051028
  Receipt Date: 20050225
  Transmission Date: 20060501
  Serious: No
  Sender: FDA-Public Use
  Company Number: US-GLAXOSMITHKLINE-A0547360A

PATIENT
  Age: 54 Year
  Sex: Female

DRUGS (21)
  1. SEREVENT [Suspect]
     Indication: ASTHMA
     Dosage: 1PUFF TWICE PER DAY
     Route: 055
  2. DURAGESIC-100 [Concomitant]
  3. FARESTON [Concomitant]
  4. NEXIUM [Concomitant]
  5. GLUCOPHAGE [Concomitant]
  6. EFFEXOR [Concomitant]
  7. NEURONTIN [Concomitant]
  8. LIPITOR [Concomitant]
  9. ZONEGRAN [Concomitant]
  10. THEO-DUR [Concomitant]
  11. AMITRIPTYLINE HCL [Concomitant]
  12. PLAVIX [Concomitant]
  13. PROVENTIL [Concomitant]
  14. SINGULAIR [Concomitant]
  15. ZYRTEC [Concomitant]
  16. FOSAMAX [Concomitant]
  17. OXYCONTIN [Concomitant]
  18. NIASPAN [Concomitant]
  19. STANOZOLOL [Concomitant]
  20. ASMACORT [Concomitant]
  21. INTAL [Concomitant]

REACTIONS (1)
  - DRUG INEFFECTIVE [None]
